FAERS Safety Report 23390852 (Version 3)
Quarter: 2024Q2

REPORT INFORMATION
  Report Type: Spontaneous
  Country: US (occurrence: US)
  Receive Date: 20240111
  Receipt Date: 20240617
  Transmission Date: 20240716
  Serious: Yes (Other)
  Sender: FDA-Public Use
  Company Number: US-SA-SAC20240109000184

PATIENT
  Age: 58 Year
  Sex: Male

DRUGS (8)
  1. FLOMAX [Suspect]
     Active Substance: TAMSULOSIN HYDROCHLORIDE
     Indication: Dysuria
     Dosage: UNK
     Route: 065
  2. ORGOVYX [Suspect]
     Active Substance: RELUGOLIX
     Indication: Prostate cancer
     Dosage: 360 MG
     Route: 048
  3. ORGOVYX [Suspect]
     Active Substance: RELUGOLIX
     Dosage: 120 MG, QD
     Route: 048
     Dates: start: 20231109
  4. ORGOVYX [Suspect]
     Active Substance: RELUGOLIX
     Dosage: UNK
     Route: 065
  5. ORGOVYX [Suspect]
     Active Substance: RELUGOLIX
     Dosage: UNK
  6. ORGOVYX [Suspect]
     Active Substance: RELUGOLIX
     Dosage: UNK
  7. XTANDI [Concomitant]
     Active Substance: ENZALUTAMIDE
     Dosage: 40 MG
     Route: 065
     Dates: start: 20230811
  8. METFORMIN [Concomitant]
     Active Substance: METFORMIN HYDROCHLORIDE
     Dosage: UNK

REACTIONS (17)
  - Type 3 diabetes mellitus [Not Recovered/Not Resolved]
  - Anxiety [Not Recovered/Not Resolved]
  - Discomfort [Unknown]
  - Hot flush [Not Recovered/Not Resolved]
  - Blood cholesterol increased [Unknown]
  - Nocturia [Unknown]
  - Pollakiuria [Not Recovered/Not Resolved]
  - Urinary tract inflammation [Recovered/Resolved]
  - Dysuria [Recovered/Resolved]
  - Hair disorder [Unknown]
  - Sexual dysfunction [Unknown]
  - Insomnia [Unknown]
  - Dyspepsia [Unknown]
  - Asthenia [Unknown]
  - Constipation [Not Recovered/Not Resolved]
  - Diarrhoea [Unknown]
  - Product dose omission issue [Unknown]
